FAERS Safety Report 7035743-7 (Version None)
Quarter: 2010Q4

REPORT INFORMATION
  Report Type: 
  Country: None (occurrence: None)
  Receive Date: 20101008
  Receipt Date: 20100929
  Transmission Date: 20110411
  Serious: Yes (Hospitalization, Other)
  Sender: FDA-Public Use
  Company Number: US-JNJFOC-20090104458

PATIENT
  Sex: Female
  Weight: 47.63 kg

DRUGS (2)
  1. REMICADE [Suspect]
     Indication: CROHN'S DISEASE
     Route: 042
  2. ALL OTHER THERAPEUTIC PRODUCTS [Concomitant]

REACTIONS (18)
  - ABASIA [None]
  - ARTHRALGIA [None]
  - BACK PAIN [None]
  - BALANCE DISORDER [None]
  - BRAIN INJURY [None]
  - BURSITIS [None]
  - CELLULITIS [None]
  - CENTRAL NERVOUS SYSTEM LESION [None]
  - DRUG TOXICITY [None]
  - DYSKINESIA [None]
  - DYSPNOEA [None]
  - EXCORIATION [None]
  - MENTAL DISORDER [None]
  - MYALGIA [None]
  - NIGHT SWEATS [None]
  - OROPHARYNGEAL PAIN [None]
  - PARALYSIS [None]
  - RHEUMATOID ARTHRITIS [None]
